FAERS Safety Report 4921404-4 (Version None)
Quarter: 2006Q1

REPORT INFORMATION
  Report Type: 
  Country: None (occurrence: None)
  Receive Date: 20060224
  Receipt Date: 20060220
  Transmission Date: 20060701
  Serious: Yes (Life-Threatening)
  Sender: FDA-Public Use
  Company Number: 2006AP00846

PATIENT
  Age: 43 Year
  Sex: Male

DRUGS (6)
  1. ANAPEINE [Suspect]
     Indication: EPIDURAL ANAESTHESIA
     Route: 008
     Dates: start: 20060129, end: 20060129
  2. XYLOCAINE [Concomitant]
     Indication: EPIDURAL ANAESTHESIA
     Route: 008
     Dates: start: 20060129, end: 20060129
  3. UNASYN [Concomitant]
     Route: 041
  4. ADONA [Concomitant]
     Route: 041
  5. TRANSAMIN [Concomitant]
     Route: 041
  6. BUSCOPAN [Concomitant]
     Route: 041

REACTIONS (2)
  - ADAMS-STOKES SYNDROME [None]
  - BRADYCARDIA [None]
